FAERS Safety Report 23202219 (Version 1)
Quarter: 2023Q4

REPORT INFORMATION
  Report Type: Spontaneous
  Country: US (occurrence: None)
  Receive Date: 20231119
  Receipt Date: 20231119
  Transmission Date: 20240109
  Serious: No
  Sender: FDA-Public Use
  Company Number: None

PATIENT
  Age: 61 Year
  Sex: Female
  Weight: 84.6 kg

DRUGS (4)
  1. DOXYCYCLINE HYCLATE [Suspect]
     Active Substance: DOXYCYCLINE HYCLATE
     Indication: Bronchitis
     Dosage: OTHER QUANTITY : 1 CAPSULE(S);?FREQUENCY : TWICE A DAY;?
     Route: 048
     Dates: start: 20231116, end: 20231117
  2. CITALOPRAM [Concomitant]
     Active Substance: CITALOPRAM HYDROBROMIDE
  3. METOPROLOL [Concomitant]
     Active Substance: METOPROLOL
  4. Lemon/ginger [Concomitant]

REACTIONS (6)
  - Dysphagia [None]
  - Oropharyngeal pain [None]
  - Throat irritation [None]
  - Chapped lips [None]
  - Headache [None]
  - Vision blurred [None]
